FAERS Safety Report 5775420-3 (Version None)
Quarter: 2008Q2

REPORT INFORMATION
  Report Type: 
  Country: None (occurrence: None)
  Receive Date: 20080613
  Receipt Date: 20080604
  Transmission Date: 20081010
  Serious: Yes (Other)
  Sender: FDA-Public Use
  Company Number: 163-21880-08060375

PATIENT
  Age: 61 Year
  Sex: Female

DRUGS (1)
  1. REVLIMID [Suspect]
     Indication: MULTIPLE MYELOMA
     Dosage: 25 MG, QD X21 DAYS, ORAL
     Route: 048
     Dates: start: 20080505

REACTIONS (5)
  - ANAEMIA [None]
  - BLISTER [None]
  - RASH [None]
  - RENAL HAEMORRHAGE [None]
  - SKIN EXFOLIATION [None]
